FAERS Safety Report 6273904-5 (Version None)
Quarter: 2009Q3

REPORT INFORMATION
  Report Type: 
  Country: None (occurrence: None)
  Receive Date: 20090715
  Receipt Date: 20090706
  Transmission Date: 20100115
  Serious: Yes (Life-Threatening, Hospitalization)
  Sender: FDA-Public Use
  Company Number: TUK2009A00100

PATIENT
  Age: 55 Year
  Sex: Female

DRUGS (1)
  1. ACTOS [Suspect]
     Indication: DIABETES MELLITUS
     Dosage: SEE IMAGE
     Route: 048

REACTIONS (3)
  - MEDICATION ERROR [None]
  - OVERDOSE [None]
  - PULMONARY EMBOLISM [None]
